FAERS Safety Report 18011171 (Version 2)
Quarter: 2020Q3

REPORT INFORMATION
  Report Type: Report from Study
  Country: BR (occurrence: BR)
  Receive Date: 20200712
  Receipt Date: 20200812
  Transmission Date: 20201103
  Serious: Yes (Other)
  Sender: FDA-Public Use
  Company Number: PHHY2019BR216302

PATIENT
  Sex: Female

DRUGS (5)
  1. SANDOSTATIN LAR DEPOT [Suspect]
     Active Substance: OCTREOTIDE ACETATE
  2. EVEROLIMUS. [Suspect]
     Active Substance: EVEROLIMUS
     Indication: PRODUCT USED FOR UNKNOWN INDICATION
     Dosage: UNK
     Route: 065
  3. CABERGOLINE. [Suspect]
     Active Substance: CABERGOLINE
     Indication: PRODUCT USED FOR UNKNOWN INDICATION
     Dosage: UNK
     Route: 065
  4. SANDOSTATIN LAR DEPOT [Suspect]
     Active Substance: OCTREOTIDE ACETATE
     Indication: NEUROENDOCRINE TUMOUR
     Dosage: UNK, EVERY 14 DAYS
     Route: 065
  5. SANDOSTATIN LAR DEPOT [Suspect]
     Active Substance: OCTREOTIDE ACETATE
     Dosage: 30 MG (EVERY 15 DAYS)
     Route: 030

REACTIONS (10)
  - Neoplasm progression [Unknown]
  - Malignant neoplasm progression [Unknown]
  - Second primary malignancy [Unknown]
  - Breast cancer [Unknown]
  - Neuroendocrine tumour [Unknown]
  - Inappropriate schedule of product administration [Unknown]
  - Illness [Unknown]
  - Needle issue [Unknown]
  - Diabetes mellitus [Unknown]
  - Blindness [Unknown]
